FAERS Safety Report 20221418 (Version 2)
Quarter: 2022Q1

REPORT INFORMATION
  Report Type: Spontaneous
  Country: US (occurrence: None)
  Receive Date: 20211223
  Receipt Date: 20220105
  Transmission Date: 20220423
  Serious: Yes (Other)
  Sender: FDA-Public Use
  Company Number: US-Hikma Pharmaceuticals USA Inc.-US-H14001-21-05428

PATIENT
  Age: 79 Year
  Sex: Male

DRUGS (2)
  1. CISPLATIN [Suspect]
     Active Substance: CISPLATIN
     Indication: Lung carcinoma cell type unspecified stage III
     Dosage: UNKNOWN
     Route: 065
  2. PEMETREXED [Concomitant]
     Active Substance: PEMETREXED
     Indication: Lung carcinoma cell type unspecified stage III
     Dosage: UNKNOWN
     Route: 065

REACTIONS (3)
  - Acquired gene mutation [Not Recovered/Not Resolved]
  - Drug resistance [Not Recovered/Not Resolved]
  - EGFR gene mutation [Not Recovered/Not Resolved]
